FAERS Safety Report 6170441-3 (Version None)
Quarter: 2009Q2

REPORT INFORMATION
  Report Type: 
  Country: None (occurrence: None)
  Receive Date: 20090428
  Receipt Date: 20090416
  Transmission Date: 20091009
  Serious: Yes (Death, Other)
  Sender: FDA-Public Use
  Company Number: CN-GENENTECH-281748

PATIENT

DRUGS (1)
  1. ACTIVASE [Suspect]
     Indication: ISCHAEMIC STROKE
     Dosage: UNK
     Route: 042

REACTIONS (2)
  - DEATH [None]
  - HAEMORRHAGE INTRACRANIAL [None]
